FAERS Safety Report 5805638-2 (Version None)
Quarter: 2008Q3

REPORT INFORMATION
  Report Type: 
  Country: None (occurrence: None)
  Receive Date: 20080710
  Receipt Date: 20080415
  Transmission Date: 20090109
  Serious: No
  Sender: FDA-Public Use
  Company Number: A0717345A

PATIENT
  Age: 59 Year
  Sex: Female

DRUGS (3)
  1. TYKERB [Suspect]
     Indication: BREAST CANCER
     Dosage: 1250MG PER DAY
     Route: 048
  2. MEGACE [Concomitant]
  3. PRILOSEC [Concomitant]

REACTIONS (2)
  - NAUSEA [None]
  - STOMACH DISCOMFORT [None]
